FAERS Safety Report 25461747 (Version 2)
Quarter: 2025Q2

REPORT INFORMATION
  Report Type: Report from Study
  Country: PH (occurrence: PH)
  Receive Date: 20250620
  Receipt Date: 20250626
  Transmission Date: 20250716
  Serious: Yes (Death)
  Sender: OTSUKA
  Company Number: PH-MMM-Otsuka-OB9N8LPG

PATIENT

DRUGS (1)
  1. ARIPIPRAZOLE [Suspect]
     Active Substance: ARIPIPRAZOLE
     Indication: Schizophrenia
     Dosage: 0.5 DF, DAILY (ABILIFY 10MG 1/2 TABLET A DAY)
     Route: 048
     Dates: start: 2022, end: 20250611

REACTIONS (3)
  - Myocardial infarction [Fatal]
  - Dyspnoea [Fatal]
  - Wrong technique in product usage process [Unknown]

NARRATIVE: CASE EVENT DATE: 20250611
